FAERS Safety Report 11997176 (Version 2)
Quarter: 2016Q1

REPORT INFORMATION
  Report Type: Report from Study
  Country: US (occurrence: US)
  Receive Date: 20160203
  Receipt Date: 20160310
  Transmission Date: 20160526
  Serious: Yes (Hospitalization, Other)
  Sender: FDA-Public Use
  Company Number: US-AMGEN-USASL2016010786

PATIENT
  Age: 64 Year
  Sex: Female

DRUGS (2)
  1. ENBREL [Suspect]
     Active Substance: ETANERCEPT
     Indication: RHEUMATOID ARTHRITIS
     Dosage: 50 MG, QWK
     Route: 065
  2. METHOTREXATE [Concomitant]
     Active Substance: METHOTREXATE
     Dosage: UNK

REACTIONS (8)
  - Drug dose omission [Unknown]
  - Peripheral swelling [Unknown]
  - Pain in extremity [Unknown]
  - Streptococcal infection [Unknown]
  - Visual acuity reduced [Unknown]
  - Injection site pain [Recovering/Resolving]
  - Shoulder operation [Unknown]
  - Device issue [Unknown]

NARRATIVE: CASE EVENT DATE: 2013
